FAERS Safety Report 23051248 (Version 2)
Quarter: 2023Q4

REPORT INFORMATION
  Report Type: Spontaneous
  Country: GB (occurrence: GB)
  Receive Date: 20231010
  Receipt Date: 20231102
  Transmission Date: 20240110
  Serious: Yes (Other)
  Sender: FDA-Public Use
  Company Number: None

PATIENT
  Age: 72 Year
  Sex: Female

DRUGS (5)
  1. CLADRIBINE [Suspect]
     Active Substance: CLADRIBINE
     Indication: Relapsing-remitting multiple sclerosis
     Dosage: WEEK ONE THERAPY. 20 MG ON DAYS 1 TO 4 AND 10 MG ON DAY 5.
     Dates: start: 20220609
  2. CLADRIBINE [Suspect]
     Active Substance: CLADRIBINE
     Dosage: WEEK FIVE THERAPY. 20 MG ON DAYS 1 TO 3 AND 10 MG ON DAYS 4 AND 5.
     Dates: start: 20220707
  3. CHOLECALCIFEROL [Concomitant]
     Active Substance: CHOLECALCIFEROL
     Indication: Product used for unknown indication
  4. VITAMIN C [Concomitant]
     Active Substance: ASCORBIC ACID
     Indication: Product used for unknown indication
  5. OSTEOCARE [CALCIUM;COLECALCIFEROL;MAGNESIUM;ZINC] [Concomitant]
     Indication: Product used for unknown indication

REACTIONS (2)
  - Invasive lobular breast carcinoma [Not Recovered/Not Resolved]
  - Dry eye [Unknown]

NARRATIVE: CASE EVENT DATE: 20230901
